FAERS Safety Report 15564914 (Version 2)
Quarter: 2018Q4

REPORT INFORMATION
  Report Type: Spontaneous
  Country: US (occurrence: US)
  Receive Date: 20181030
  Receipt Date: 20181221
  Transmission Date: 20190205
  Serious: No
  Sender: FDA-Public Use
  Company Number: US-GLENMARK PHARMACEUTICALS-2018GMK037492

PATIENT

DRUGS (2)
  1. TACROLIMUS. [Suspect]
     Active Substance: TACROLIMUS
     Indication: ECZEMA
     Dosage: UNK, SINGLE
     Route: 061
     Dates: start: 20180908, end: 20180909
  2. MIRENA [Concomitant]
     Active Substance: LEVONORGESTREL
     Indication: CONTRACEPTION
     Dosage: UNK
     Route: 015
     Dates: start: 201505

REACTIONS (2)
  - Eczema [Not Recovered/Not Resolved]
  - Drug ineffective [Unknown]

NARRATIVE: CASE EVENT DATE: 20180908
